FAERS Safety Report 6744263-6 (Version None)
Quarter: 2010Q2

REPORT INFORMATION
  Report Type: 
  Country: None (occurrence: None)
  Receive Date: 20100527
  Receipt Date: 20100520
  Transmission Date: 20101027
  Serious: Yes (Hospitalization)
  Sender: FDA-Public Use
  Company Number: FR-GILEAD-2010-0029402

PATIENT
  Age: 70 Year
  Sex: Male
  Weight: 78 kg

DRUGS (11)
  1. ATRIPLA [Suspect]
     Indication: HIV INFECTION
     Dates: start: 20090601
  2. TRUVADA [Concomitant]
     Indication: HIV INFECTION
     Dates: start: 20070701, end: 20090601
  3. SUSTIVA [Concomitant]
  4. AMAREL [Concomitant]
  5. METFORMIN HCL [Concomitant]
  6. AMLOR [Concomitant]
  7. LODOZ [Concomitant]
  8. LIPUR [Concomitant]
  9. OMACOR [Concomitant]
  10. OMEPRAZOLE [Concomitant]
  11. LEXOMIL [Concomitant]

REACTIONS (1)
  - ANAEMIA [None]
